FAERS Safety Report 7232542-8 (Version None)
Quarter: 2011Q1

REPORT INFORMATION
  Report Type: 
  Country: None (occurrence: None)
  Receive Date: 20110106
  Receipt Date: 20101229
  Transmission Date: 20110831
  Serious: Yes (Other)
  Sender: FDA-Public Use
  Company Number: 021337

PATIENT
  Sex: Female

DRUGS (4)
  1. DEMEROL [Suspect]
  2. NALBUPHINE HYDROCHLORIDE [Suspect]
  3. COPAXONE [Suspect]
     Indication: MULTIPLE SCLEROSIS
     Dosage: (20MG SUBCUTANEOUS)
     Route: 058
     Dates: start: 20100912
  4. LORTAB [Suspect]

REACTIONS (2)
  - CONVULSION [None]
  - OBSTRUCTIVE AIRWAYS DISORDER [None]
